FAERS Safety Report 4319958-4 (Version None)
Quarter: 2004Q1

REPORT INFORMATION
  Report Type: 
  Country: None (occurrence: None)
  Receive Date: 20040317
  Receipt Date: 20040304
  Transmission Date: 20041129
  Serious: Yes (Hospitalization, Other)
  Sender: FDA-Public Use
  Company Number: 2004015650

PATIENT
  Age: 78 Year
  Sex: Female
  Weight: 66.2252 kg

DRUGS (4)
  1. LIPITOR [Suspect]
     Indication: BLOOD CHOLESTEROL INCREASED
  2. HMG COA REDUCTASE INHIBITORS [Suspect]
     Indication: ILL-DEFINED DISORDER
     Dates: end: 20030301
  3. SERUMLIPIDREDUCING AGENTS [Suspect]
     Indication: ILL-DEFINED DISORDER
     Dates: end: 20030301
  4. LEVOTHYROXINE SODIUM [Concomitant]

REACTIONS (6)
  - BACK PAIN [None]
  - BLOOD CHOLESTEROL INCREASED [None]
  - MUSCLE CRAMP [None]
  - MYALGIA [None]
  - PAIN IN EXTREMITY [None]
  - TRANSIENT ISCHAEMIC ATTACK [None]
